FAERS Safety Report 8590184-6 (Version None)
Quarter: 2012Q3

REPORT INFORMATION
  Report Type: 
  Country: None (occurrence: None)
  Receive Date: 20120813
  Receipt Date: 20120803
  Transmission Date: 20120928
  Serious: Yes (Other)
  Sender: FDA-Public Use
  Company Number: US-ASTRAZENECA-2012SE55103

PATIENT
  Age: 54 Year
  Sex: Female
  Weight: 81.6 kg

DRUGS (12)
  1. VIACTIV [Concomitant]
     Dosage: DAILY
     Route: 048
  2. BUSPAR [Concomitant]
     Indication: ANXIETY
     Route: 048
     Dates: start: 20080101
  3. PREDNISONE TAB [Concomitant]
     Indication: FIBROMYALGIA
     Route: 048
     Dates: start: 20090101
  4. SIMVASTATIN [Concomitant]
     Indication: BLOOD CHOLESTEROL INCREASED
     Route: 048
     Dates: start: 20080101
  5. NEXIUM [Suspect]
     Indication: GASTROOESOPHAGEAL REFLUX DISEASE
     Route: 048
     Dates: start: 20070101, end: 20120701
  6. GABAPENTIN [Concomitant]
     Indication: NEURALGIA
     Route: 048
     Dates: start: 20110101
  7. ALPRAZOLAM [Concomitant]
     Indication: SLEEP DISORDER
     Route: 048
     Dates: start: 20110101
  8. PROLIA [Concomitant]
     Indication: OSTEOPOROSIS
     Dates: start: 20090101
  9. HYDROCODONE BITARTRATE [Concomitant]
     Indication: PAIN
     Route: 048
     Dates: start: 20110101
  10. NEXIUM [Suspect]
     Dosage: SAMPLES
     Route: 048
     Dates: start: 20120701
  11. NASONEX [Concomitant]
     Indication: NASAL CONGESTION
     Dosage: DAILY
     Route: 045
  12. M.V.I. [Concomitant]
     Dosage: DAILY
     Route: 048

REACTIONS (10)
  - ULCER [None]
  - ANXIETY [None]
  - MULTIPLE FRACTURES [None]
  - INTERVERTEBRAL DISC PROTRUSION [None]
  - FIBROMYALGIA [None]
  - OFF LABEL USE [None]
  - SPINAL COLUMN STENOSIS [None]
  - GASTRITIS [None]
  - OSTEOPOROSIS [None]
  - BLOOD CHOLESTEROL INCREASED [None]
